FAERS Safety Report 13775701 (Version 2)
Quarter: 2018Q3

REPORT INFORMATION
  Report Type: Spontaneous
  Country: US (occurrence: US)
  Receive Date: 20170720
  Receipt Date: 20180703
  Transmission Date: 20181010
  Serious: No
  Sender: FDA-Public Use
  Company Number: US-BAUSCH-BL-2017-017212

PATIENT
  Age: 66 Year
  Sex: Female

DRUGS (1)
  1. BESIVANCE [Suspect]
     Active Substance: BESIFLOXACIN
     Indication: EYE OPERATION
     Dosage: INTO THE RIGHT EYE
     Route: 047

REACTIONS (3)
  - Accidental exposure to product [Unknown]
  - Product closure issue [Unknown]
  - Off label use [Unknown]

NARRATIVE: CASE EVENT DATE: 201705
